FAERS Safety Report 5196336-X (Version None)
Quarter: 2006Q4

REPORT INFORMATION
  Report Type: 
  Country: None (occurrence: None)
  Receive Date: 20061222
  Receipt Date: 20061212
  Transmission Date: 20070319
  Serious: Yes (Life-Threatening, Hospitalization)
  Sender: FDA-Public Use
  Company Number: 2006144709

PATIENT
  Age: 70 Year
  Sex: Female
  Weight: 52 kg

DRUGS (10)
  1. SULPERAZON (SULBACTAM, CEFOPERAZONE) [Suspect]
     Indication: PROPHYLAXIS
     Dosage: 2 GRAM (2 IN 1 D); INTRAVENOUS
     Route: 042
     Dates: start: 20061005, end: 20061023
  2. SULPERAZON (SULBACTAM, CEFOPERAZONE) [Suspect]
     Indication: PYREXIA
     Dosage: 2 GRAM (2 IN 1 D); INTRAVENOUS
     Route: 042
     Dates: start: 20061005, end: 20061023
  3. MIRACLID (ULINASTATIN) [Concomitant]
  4. HYPNOTICS AND SEDATIVES [Concomitant]
  5. URSO (URSODEOXYCHOLIC ACID) [Concomitant]
  6. NAUZELIN (DOMPERIDONE) [Concomitant]
  7. TOUGHMAC E (ENZYMES NOS) [Concomitant]
  8. ALLOID (SODIUM ALGINATE) [Concomitant]
  9. MUCOSTA (REBAMIPIDE) [Concomitant]
  10. SOLU-MEDROL [Concomitant]

REACTIONS (22)
  - ACIDOSIS [None]
  - BACTERIA URINE IDENTIFIED [None]
  - BLOOD PRESSURE DECREASED [None]
  - CARDIAC FAILURE [None]
  - CARDIOMYOPATHY [None]
  - CHROMATURIA [None]
  - CONTINUOUS HAEMODIAFILTRATION [None]
  - DEPRESSED LEVEL OF CONSCIOUSNESS [None]
  - EJECTION FRACTION DECREASED [None]
  - HAEMOLYTIC ANAEMIA [None]
  - LYMPHOCYTE STIMULATION TEST POSITIVE [None]
  - MUSCLE DISORDER [None]
  - RED BLOOD CELLS URINE POSITIVE [None]
  - RENAL DISORDER [None]
  - RENAL FAILURE [None]
  - RENAL FAILURE ACUTE [None]
  - RHABDOMYOLYSIS [None]
  - SINUS TACHYCARDIA [None]
  - THROMBOCYTOPENIC PURPURA [None]
  - URINARY SEDIMENT PRESENT [None]
  - VENTRICULAR TACHYCARDIA [None]
  - WHITE BLOOD CELL COUNT ABNORMAL [None]
